FAERS Safety Report 12931065 (Version 1)
Quarter: 2016Q4

REPORT INFORMATION
  Report Type: Spontaneous
  Country: US (occurrence: US)
  Receive Date: 20161110
  Receipt Date: 20161110
  Transmission Date: 20170207
  Serious: No
  Sender: FDA-Public Use
  Company Number: US-JAZZ-2016-US-017654

PATIENT
  Sex: Female

DRUGS (36)
  1. MOBIC [Concomitant]
     Active Substance: MELOXICAM
  2. CLONAZEPAM. [Concomitant]
     Active Substance: CLONAZEPAM
  3. CYMBALTA [Concomitant]
     Active Substance: DULOXETINE HYDROCHLORIDE
  4. ARIZONA [Concomitant]
  5. METROGEL [Concomitant]
     Active Substance: METRONIDAZOLE
  6. XYREM [Suspect]
     Active Substance: SODIUM OXYBATE
     Dosage: 3 G, SECOND DOSE
     Route: 048
     Dates: start: 201006, end: 201011
  7. ALLEGRA [Concomitant]
     Active Substance: FEXOFENADINE HYDROCHLORIDE
  8. NAMENDA [Concomitant]
     Active Substance: MEMANTINE HYDROCHLORIDE
  9. PLEXION [Concomitant]
     Active Substance: SULFACETAMIDE SODIUM\SULFUR
  10. PROVIGIL [Concomitant]
     Active Substance: MODAFINIL
  11. SUCRALFATE. [Concomitant]
     Active Substance: SUCRALFATE
  12. VIIBRYD [Concomitant]
     Active Substance: VILAZODONE HYDROCHLORIDE
  13. VITAMIN D [Concomitant]
     Active Substance: CHOLECALCIFEROL
  14. AUGMENTIN [Concomitant]
     Active Substance: AMOXICILLIN\CLAVULANATE POTASSIUM
  15. CALCIUM + VITAMIN D [Concomitant]
     Active Substance: CALCIUM\VITAMIN D
  16. LYRICA [Concomitant]
     Active Substance: PREGABALIN
  17. TETRACYCLINE [Concomitant]
     Active Substance: TETRACYCLINE
  18. KLONOPIN [Concomitant]
     Active Substance: CLONAZEPAM
  19. KETOROLAC [Concomitant]
     Active Substance: KETOROLAC\KETOROLAC TROMETHAMINE
  20. NUVIGIL [Concomitant]
     Active Substance: ARMODAFINIL
  21. XYREM [Suspect]
     Active Substance: SODIUM OXYBATE
     Dosage: 4.5 G, BID
     Route: 048
     Dates: start: 201011
  22. CEREFOLIN NAC [Concomitant]
  23. CEROVITE [Concomitant]
     Active Substance: FOLIC ACID\IRON
  24. SOLODYN [Concomitant]
     Active Substance: MINOCYCLINE HYDROCHLORIDE
  25. XYREM [Suspect]
     Active Substance: SODIUM OXYBATE
     Indication: SOMNOLENCE
     Dosage: 4.5 G, BID
     Route: 048
     Dates: start: 200912, end: 201006
  26. LASIX [Concomitant]
     Active Substance: FUROSEMIDE
  27. PLAQUENIL [Concomitant]
     Active Substance: HYDROXYCHLOROQUINE SULFATE
  28. VITAMIN B COMPLEX [Concomitant]
     Active Substance: CYANOCOBALAMIN\DEXPANTHENOL\NIACINAMIDE\PYRIDOXINE HYDROCHLORIDE\RIBOFLAVIN 5^-PHOSPHATE SODIUM\THIAMINE HYDROCHLORIDE\VITAMIN B COMPLEX
  29. RESTASIS [Concomitant]
     Active Substance: CYCLOSPORINE
  30. XYREM [Suspect]
     Active Substance: SODIUM OXYBATE
     Dosage: 5 G, FIRST DOSE
     Route: 048
     Dates: start: 201006, end: 201011
  31. ALENDRONATE SODIUM. [Concomitant]
     Active Substance: ALENDRONATE SODIUM
  32. ASPIRIN. [Concomitant]
     Active Substance: ASPIRIN
  33. FLONASE [Concomitant]
     Active Substance: FLUTICASONE PROPIONATE
  34. TYLENOL WITH CODEINE [Concomitant]
     Active Substance: ACETAMINOPHEN\CODEINE PHOSPHATE
  35. ZANTAC [Concomitant]
     Active Substance: RANITIDINE HYDROCHLORIDE
  36. NEXIUM [Concomitant]
     Active Substance: ESOMEPRAZOLE MAGNESIUM

REACTIONS (1)
  - Malaise [Not Recovered/Not Resolved]
